FAERS Safety Report 5211445-4 (Version None)
Quarter: 2006Q4

REPORT INFORMATION
  Report Type: 
  Country: None (occurrence: None)
  Receive Date: 20061115
  Receipt Date: 20060913
  Transmission Date: 20070319
  Serious: No
  Sender: FDA-Public Use
  Company Number: 200615592BWH

PATIENT
  Age: 61 Year
  Sex: Male

DRUGS (1)
  1. NEXAVAR [Suspect]
     Indication: NEOPLASM MALIGNANT
     Dosage: 400 MG, QD; ORAL, 400 MG, QD; ORAL
     Route: 048
     Dates: start: 20060728, end: 20060905

REACTIONS (2)
  - DIARRHOEA [None]
  - INSOMNIA [None]
